FAERS Safety Report 6821519-X (Version None)
Quarter: 2010Q3

REPORT INFORMATION
  Report Type: 
  Country: None (occurrence: None)
  Receive Date: 20100707
  Receipt Date: 20081119
  Transmission Date: 20110219
  Serious: No
  Sender: FDA-Public Use
  Company Number: US-PFIZER INC-2008097548

PATIENT
  Sex: Female
  Weight: 56.363 kg

DRUGS (6)
  1. SERTRALINE HCL [Suspect]
     Indication: NERVOUSNESS
     Dates: start: 20081001
  2. ATENOLOL [Concomitant]
  3. ZETIA [Concomitant]
  4. DRUG, UNSPECIFIED [Concomitant]
  5. VITAMINS [Concomitant]
  6. ACETYLSALICYLIC ACID [Concomitant]

REACTIONS (5)
  - ADVERSE DRUG REACTION [None]
  - DECREASED APPETITE [None]
  - FEELING ABNORMAL [None]
  - FEELING JITTERY [None]
  - NERVOUSNESS [None]
